FAERS Safety Report 16256824 (Version 12)
Quarter: 2022Q1

REPORT INFORMATION
  Report Type: Spontaneous
  Country: US (occurrence: US)
  Receive Date: 20190430
  Receipt Date: 20220321
  Transmission Date: 20220423
  Serious: Yes (Other)
  Sender: FDA-Public Use
  Company Number: US-PFIZER INC-2019178863

PATIENT
  Age: 71 Year
  Sex: Female
  Weight: 81.65 kg

DRUGS (5)
  1. XELJANZ XR [Suspect]
     Active Substance: TOFACITINIB CITRATE
     Indication: Rheumatoid arthritis
     Dosage: 11 MG, 1X/DAY
     Route: 048
     Dates: start: 201903
  2. XELJANZ XR [Suspect]
     Active Substance: TOFACITINIB CITRATE
     Indication: Polymyalgia rheumatica
     Dosage: 11 MG, 1X/DAY (IN MORNING (QAM))
  3. METFORMIN [Concomitant]
     Active Substance: METFORMIN HYDROCHLORIDE
     Indication: Diabetes mellitus
     Dosage: 500 MG, 1X/DAY
     Route: 048
  4. VALSARTAN [Concomitant]
     Active Substance: VALSARTAN
     Indication: Blood pressure abnormal
     Dosage: UNK, 1X/DAY [320MG/12.5MG OBLONG TABLET IN THE MORNING](6YR)
     Route: 048
  5. AMLODIPINE BESYLATE [Concomitant]
     Active Substance: AMLODIPINE BESYLATE
     Indication: Blood pressure abnormal
     Dosage: 10 MG, 1X/DAY AT NIGHT
     Route: 048

REACTIONS (9)
  - Fibrodysplasia ossificans progressiva [Recovered/Resolved]
  - Bronchitis [Recovered/Resolved]
  - Infection [Recovered/Resolved]
  - Asthenia [Recovered/Resolved]
  - Speech disorder [Recovered/Resolved]
  - Illness [Recovered/Resolved]
  - Anaemia [Recovered/Resolved]
  - Discomfort [Unknown]
  - Pain [Not Recovered/Not Resolved]

NARRATIVE: CASE EVENT DATE: 20190401
